FAERS Safety Report 23785002 (Version 1)
Quarter: 2024Q2

REPORT INFORMATION
  Report Type: Report from Study
  Country: US (occurrence: US)
  Receive Date: 20240425
  Receipt Date: 20240425
  Transmission Date: 20240716
  Serious: Yes (Other)
  Sender: FDA-Public Use
  Company Number: US-TAIHOP-2024-004284

PATIENT
  Sex: Female
  Weight: 58.97 kg

DRUGS (1)
  1. LONSURF [Suspect]
     Active Substance: TIPIRACIL HYDROCHLORIDE\TRIFLURIDINE
     Indication: Colon cancer
     Dosage: CURRENT CYCLE UNKNOWN; FORM STRENGTH: 15 AND 20 MG
     Route: 048
     Dates: start: 20240318

REACTIONS (5)
  - Blood pressure decreased [Recovering/Resolving]
  - Loss of consciousness [Recovering/Resolving]
  - Diarrhoea [Recovering/Resolving]
  - Fatigue [Recovering/Resolving]
  - Decreased appetite [Recovering/Resolving]
